FAERS Safety Report 7326378-7 (Version None)
Quarter: 2011Q1

REPORT INFORMATION
  Report Type: 
  Country: None (occurrence: None)
  Receive Date: 20110222
  Receipt Date: 20110209
  Transmission Date: 20110831
  Serious: Yes (Other)
  Sender: FDA-Public Use
  Company Number: US-GDP-11409978

PATIENT
  Age: 42 Year
  Sex: Female

DRUGS (2)
  1. LORAZEPAM [Concomitant]
  2. CLOBEX [Suspect]
     Indication: PSORIASIS
     Dosage: (TROPICAL)
     Route: 061
     Dates: start: 20080101, end: 20090101

REACTIONS (2)
  - INCORRECT DRUG ADMINISTRATION DURATION [None]
  - CUSHING'S SYNDROME [None]
